FAERS Safety Report 7304874-6 (Version None)
Quarter: 2011Q1

REPORT INFORMATION
  Report Type: 
  Country: None (occurrence: None)
  Receive Date: 20110222
  Receipt Date: 20110214
  Transmission Date: 20110831
  Serious: Yes (Other)
  Sender: FDA-Public Use
  Company Number: BR-US-EMD SERONO, INC.-7037977

PATIENT
  Sex: Female

DRUGS (5)
  1. FLUOXETINE [Concomitant]
  2. REBIF [Suspect]
     Indication: RELAPSING-REMITTING MULTIPLE SCLEROSIS
     Dates: start: 20020315
  3. FOLIC ACID [Concomitant]
  4. EVISTA [Concomitant]
  5. MACRODANTIN [Concomitant]

REACTIONS (2)
  - NEPHROLITHIASIS [None]
  - MITRAL VALVE PROLAPSE [None]
